FAERS Safety Report 4713029-0 (Version None)
Quarter: 2005Q3

REPORT INFORMATION
  Report Type: 
  Country: None (occurrence: None)
  Receive Date: 20050713
  Receipt Date: 20050701
  Transmission Date: 20060218
  Serious: Yes (Hospitalization)
  Sender: FDA-Public Use
  Company Number: US-AMGEN-US141001

PATIENT
  Sex: Male

DRUGS (2)
  1. ENBREL [Suspect]
     Indication: PSORIASIS
     Route: 058
     Dates: start: 20041001, end: 20050601
  2. ALLOPURINOL [Concomitant]

REACTIONS (2)
  - HYPERTRIGLYCERIDAEMIA [None]
  - PANCREATITIS [None]
